FAERS Safety Report 25796228 (Version 2)
Quarter: 2025Q3

REPORT INFORMATION
  Report Type: Spontaneous
  Country: US (occurrence: US)
  Receive Date: 20250912
  Receipt Date: 20250926
  Transmission Date: 20251021
  Serious: No
  Sender: PFIZER
  Company Number: US-PFIZER INC-202500179926

PATIENT
  Age: 15 Year
  Sex: Male

DRUGS (1)
  1. LITFULO [Suspect]
     Active Substance: RITLECITINIB TOSYLATE

REACTIONS (5)
  - Sinusitis [Unknown]
  - Headache [Unknown]
  - Fatigue [Unknown]
  - Myalgia [Unknown]
  - Chills [Unknown]
